FAERS Safety Report 8249969 (Version 3)
Quarter: 2012Q4

REPORT INFORMATION
  Report Type: 
  Country: US (occurrence: US)
  Receive Date: 20111117
  Receipt Date: 20121127
  Transmission Date: 20130627
  Serious: Yes (Death)
  Sender: FDA-Public Use
  Company Number: US-MPIJNJ-2011-05376

PATIENT

DRUGS (2)
  1. VELCADE [Suspect]
     Indication: MULTIPLE MYELOMA
     Dosage: 1.0 mg/m2, Cyclic
     Route: 040
  2. BENDAMUSTINE [Suspect]
     Indication: MULTIPLE MYELOMA
     Dosage: UNK
     Route: 042

REACTIONS (1)
  - Death [Fatal]
